FAERS Safety Report 7303252-3 (Version None)
Quarter: 2011Q1

REPORT INFORMATION
  Report Type: 
  Country: None (occurrence: None)
  Receive Date: 20110221
  Receipt Date: 20091016
  Transmission Date: 20110831
  Serious: No
  Sender: FDA-Public Use
  Company Number: 2009BI033786

PATIENT
  Age: 50 Year
  Sex: Female

DRUGS (1)
  1. TYSABRI [Suspect]
     Indication: MULTIPLE SCLEROSIS
     Route: 042
     Dates: start: 20080319

REACTIONS (5)
  - FATIGUE [None]
  - CYSTITIS [None]
  - INFLUENZA [None]
  - OVERGROWTH BACTERIAL [None]
  - INFECTION SUSCEPTIBILITY INCREASED [None]
